FAERS Safety Report 24779172 (Version 1)
Quarter: 2024Q4

REPORT INFORMATION
  Report Type: Spontaneous
  Country: US (occurrence: US)
  Receive Date: 20241226
  Receipt Date: 20241226
  Transmission Date: 20250114
  Serious: Yes (Other)
  Sender: PFIZER
  Company Number: US-PFIZER INC-202400329961

PATIENT
  Age: 76 Year
  Sex: Female

DRUGS (1)
  1. IBRANCE [Suspect]
     Active Substance: PALBOCICLIB
     Dosage: 100 MG, 1 TABLET ORALLY DAILY (DAYS 1 THROUGH 21, THEN 7 DAYS OFF EACH 28-DAY TREATMENT)
     Route: 048

REACTIONS (1)
  - Pancytopenia [Unknown]
